FAERS Safety Report 4797992-8 (Version None)
Quarter: 2005Q3

REPORT INFORMATION
  Report Type: 
  Country: None (occurrence: None)
  Receive Date: 20050929
  Receipt Date: 20050819
  Transmission Date: 20060218
  Serious: No
  Sender: FDA-Public Use
  Company Number: 05P-163-0308637

PATIENT
  Age: 54 Year
  Sex: Male
  Weight: 90.7194 kg

DRUGS (8)
  1. HUMIRA [Suspect]
     Indication: RHEUMATOID ARTHRITIS
     Dosage: 40 MG, 1 IN 2 WK
     Dates: start: 20050807
  2. HYDROXYCHLOROQUINE SULFATE [Concomitant]
  3. COLCHICINE [Concomitant]
  4. NISOLDIPINE [Concomitant]
  5. DIOVAN [Concomitant]
  6. IRON PILL [Concomitant]
  7. IBUPROFEN [Concomitant]
  8. MELOXICAM [Concomitant]

REACTIONS (2)
  - NODULE ON EXTREMITY [None]
  - OEDEMA PERIPHERAL [None]
